FAERS Safety Report 4596616-2 (Version None)
Quarter: 2005Q1

REPORT INFORMATION
  Report Type: 
  Country: None (occurrence: None)
  Receive Date: 20050228
  Receipt Date: 20050214
  Transmission Date: 20050727
  Serious: Yes (Hospitalization)
  Sender: FDA-Public Use
  Company Number: DPC-2004-00092

PATIENT
  Age: 62 Year
  Sex: Male

DRUGS (21)
  1. EVOXAC [Suspect]
     Dosage: (QD OR TID), PER ORAL
     Route: 048
     Dates: start: 20030101, end: 20041101
  2. SYNTHROID [Concomitant]
  3. ENTEX PSE (RESPAIRE-SR-120) [Concomitant]
  4. CALCIUM WITH VITAMIN D (CALCIUM WITH VITAMIN D) [Concomitant]
  5. VITAMINS (VITAMINS) [Concomitant]
  6. NUPRIN (IBUPROFEN) (TALETS) (IBUPROFEN) [Concomitant]
  7. BENTYL [Concomitant]
  8. LIPITOR [Concomitant]
  9. ZANAFLEX [Concomitant]
  10. MIRALAX (MACROGOL) (MACROGOL) [Concomitant]
  11. ADVAIR DISKUS 100/50 [Concomitant]
  12. ASTELIN (AZELASTINE HYDROCHLORIDE) (AZELASTINE HYDROCHLORIDE) [Concomitant]
  13. CLARITIN (LORATADINE) (LORATADINE) [Concomitant]
  14. CLARINEX (DESLORATADINE) (DESLORATADINE) [Concomitant]
  15. FIORINAL (BUTALBITAL W/ASPIRIN, CAFFEINE) (ACETYLSALICYLIC ACID, CAFFE [Concomitant]
  16. NASACORT (TRIAMCINOLONE ACETONIDE) (TRIAMCINOLONE ACETONIDE) [Concomitant]
  17. NEURONTIN [Concomitant]
  18. PARAFON FORTE (PARAFON FORTE) (CHLORZOXAZONE, PARACETAMOL) [Concomitant]
  19. SUDAFED (PSEUDOEPHEDRINE HYDROCHLORIDE) (PSEUDOEPHEDRINE HYDROCHLORIDE [Concomitant]
  20. ZOVIRAX (ACICLOVIR SODIUM) (OINTMENT) (ACICLOVIR SODIUM) [Concomitant]
  21. PRILOSEC [Concomitant]

REACTIONS (8)
  - CONDITION AGGRAVATED [None]
  - DEHYDRATION [None]
  - DYSPNOEA [None]
  - HEAT STROKE [None]
  - HYPOVOLAEMIA [None]
  - ORTHOSTATIC HYPOTENSION [None]
  - POSTURAL ORTHOSTATIC TACHYCARDIA SYNDROME [None]
  - PYREXIA [None]
